FAERS Safety Report 9646131 (Version 3)
Quarter: 2013Q4

REPORT INFORMATION
  Report Type: Report from Study
  Country: JP (occurrence: JP)
  Receive Date: 20131025
  Receipt Date: 20131118
  Transmission Date: 20140711
  Serious: Yes (Hospitalization)
  Sender: FDA-Public Use
  Company Number: JP-TAKEDA-TCI2013A06264

PATIENT
  Age: 58 Year
  Sex: Male
  Weight: 71 kg

DRUGS (11)
  1. LANSOPRAZOLE [Suspect]
     Indication: PROPHYLAXIS AGAINST GASTROINTESTINAL ULCER
     Dosage: 15 MG, QD
     Route: 048
     Dates: start: 20120829
  2. NESINA [Concomitant]
     Dosage: 25 MG, QD
     Route: 048
  3. BLOPRESS [Concomitant]
     Dosage: 8 MG, 1DAYS
     Route: 048
  4. BAYASPIRIN [Concomitant]
     Indication: THROMBOSIS PROPHYLAXIS
     Dosage: 100 MG, 1DAYS
     Route: 048
  5. PLETAAL [Concomitant]
     Indication: MYOCARDIAL INFARCTION
     Dosage: 200 MG, 1DAYS
     Route: 048
  6. BEZAFIBRAT SR [Concomitant]
     Dosage: 400 MG, 1DAYS
     Route: 048
  7. WYPAX [Concomitant]
     Dosage: 0.5 MG, 1DAYS
     Route: 048
  8. ATENOLOL [Concomitant]
     Dosage: 12.5 MG, 1DAYS
     Route: 048
  9. MYSLEE [Concomitant]
     Dosage: 10 MG, 1DAYS
     Route: 048
  10. BENZALIN [Concomitant]
     Dosage: 5 MG, 1DAYS
     Route: 048
  11. VOGLIBOSE [Concomitant]
     Dosage: 0.6 MG, 1DAYS
     Route: 048

REACTIONS (1)
  - Urinary tract infection [Recovered/Resolved]
